FAERS Safety Report 12389885 (Version 1)
Quarter: 2016Q2

REPORT INFORMATION
  Report Type: Spontaneous
  Country: US (occurrence: US)
  Receive Date: 20160520
  Receipt Date: 20160520
  Transmission Date: 20160815
  Serious: No
  Sender: FDA-Public Use
  Company Number: ADR-2015-01643

PATIENT
  Age: 41 Year
  Sex: Female

DRUGS (3)
  1. BOTOX [Suspect]
     Active Substance: ONABOTULINUMTOXINA
  2. LIORESAL [Suspect]
     Active Substance: BACLOFEN
     Route: 037
  3. BACLOFEN. [Suspect]
     Active Substance: BACLOFEN
     Route: 048

REACTIONS (8)
  - Back pain [Unknown]
  - Malaise [Unknown]
  - Feeling abnormal [Unknown]
  - Neck pain [Unknown]
  - Musculoskeletal stiffness [Unknown]
  - Performance status decreased [Unknown]
  - Pain in extremity [Unknown]
  - Foot deformity [Unknown]

NARRATIVE: CASE EVENT DATE: 201401
